FAERS Safety Report 9325674 (Version 1)
Quarter: 2013Q2

REPORT INFORMATION
  Report Type: Spontaneous
  Country: US (occurrence: None)
  Receive Date: 20130531
  Receipt Date: 20130531
  Transmission Date: 20140414
  Serious: Yes (Life-Threatening, Disabling, Other)
  Sender: FDA-Public Use
  Company Number: None

PATIENT
  Age: 52 Year
  Sex: Female
  Weight: 65.32 kg

DRUGS (2)
  1. KEPPRA [Suspect]
     Indication: EPILEPSY
     Dosage: EVERY 12 HOURS
     Route: 048
     Dates: start: 20071107, end: 20130525
  2. LIPITOR [Suspect]
     Dates: start: 20100115, end: 20130525

REACTIONS (5)
  - Vertigo [None]
  - Balance disorder [None]
  - Gastrointestinal disorder [None]
  - Occult blood [None]
  - Constipation [None]
